FAERS Safety Report 4274378-6 (Version None)
Quarter: 2004Q1

REPORT INFORMATION
  Report Type: 
  Country: None (occurrence: None)
  Receive Date: 20040120
  Receipt Date: 20030109
  Transmission Date: 20041129
  Serious: Yes (Other)
  Sender: FDA-Public Use
  Company Number: US-BRISTOL-MYERS SQUIBB COMPANY-12154621

PATIENT
  Age: 58 Year
  Sex: Male

DRUGS (7)
  1. PRAVASTATIN SODIUM [Suspect]
     Route: 048
     Dates: start: 20010712, end: 20010714
  2. GATIFLOXACIN [Suspect]
     Dosage: MOST RECENT DOSE PRIOR TO EVENT 22-DEC-2002
     Route: 048
     Dates: start: 20010730, end: 20030107
  3. METOPROLOL [Concomitant]
     Route: 048
     Dates: start: 19990901
  4. ZOCOR [Concomitant]
     Route: 048
     Dates: start: 20010715
  5. ASPIRIN [Concomitant]
     Route: 048
     Dates: start: 20010814
  6. PREVACID [Concomitant]
     Route: 048
     Dates: start: 19990901
  7. VIOXX [Concomitant]
     Route: 048
     Dates: start: 20010814

REACTIONS (4)
  - BALANCE DISORDER [None]
  - DIABETES MELLITUS NON-INSULIN-DEPENDENT [None]
  - FEELING ABNORMAL [None]
  - VISUAL ACUITY REDUCED [None]
